FAERS Safety Report 8932379 (Version 1)
Quarter: 2012Q4

REPORT INFORMATION
  Report Type: 
  Country: US (occurrence: US)
  Receive Date: 20121128
  Receipt Date: 20121128
  Transmission Date: 20130627
  Serious: Yes (Hospitalization, Disabling, Other)
  Sender: FDA-Public Use
  Company Number: US-ROXANE LABORATORIES, INC.-2012-BI-00334GD

PATIENT
  Age: 15 Year
  Sex: Male

DRUGS (2)
  1. PREDNISONE [Suspect]
     Indication: SINUS HEADACHE
  2. AUGMENTIN [Suspect]
     Indication: SINUS HEADACHE

REACTIONS (14)
  - Blindness [Unknown]
  - Tumour lysis syndrome [Unknown]
  - Renal failure [Unknown]
  - VIIth nerve paralysis [Unknown]
  - Headache [Unknown]
  - Haematemesis [Unknown]
  - Erythema [Unknown]
  - Swelling face [Unknown]
  - Swelling [Unknown]
  - Local swelling [Unknown]
  - Hepatosplenomegaly [Unknown]
  - Lymphadenopathy [Unknown]
  - Tachypnoea [Unknown]
  - Optic nerve disorder [Unknown]
